FAERS Safety Report 9044036 (Version 1)
Quarter: 2013Q1

REPORT INFORMATION
  Report Type: Spontaneous
  Country: IT (occurrence: IT)
  Receive Date: 20130130
  Receipt Date: 20130130
  Transmission Date: 20140127
  Serious: Yes (Hospitalization)
  Sender: FDA-Public Use
  Company Number: IT-BRISTOL-MYERS SQUIBB COMPANY-17318080

PATIENT
  Age: 84 Year
  Sex: Male

DRUGS (1)
  1. COUMADIN TABS 5 MG [Suspect]
     Indication: ATRIAL FIBRILLATION
     Dosage: 1DF- 1 UNIT
     Route: 048
     Dates: start: 20100101, end: 20120630

REACTIONS (3)
  - Rectal haemorrhage [Unknown]
  - Syncope [Recovering/Resolving]
  - Anaemia [Unknown]
